FAERS Safety Report 13268156 (Version 2)
Quarter: 2017Q2

REPORT INFORMATION
  Report Type: Spontaneous
  Country: US (occurrence: US)
  Receive Date: 20170224
  Receipt Date: 20170428
  Transmission Date: 20170830
  Serious: Yes (Hospitalization, Disabling, Other)
  Sender: FDA-Public Use
  Company Number: US-009507513-1702USA010386

PATIENT
  Sex: Female
  Weight: 124.72 kg

DRUGS (10)
  1. JANUVIA [Suspect]
     Active Substance: SITAGLIPTIN PHOSPHATE
     Dosage: 100 MG, QD
     Route: 048
     Dates: start: 201301, end: 201402
  2. LEXAPRO [Concomitant]
     Active Substance: ESCITALOPRAM OXALATE
     Indication: DEPRESSION
     Dosage: UNK
     Route: 065
     Dates: start: 201106, end: 201501
  3. LISINOPRIL (+) HYDROCHLOROTHIAZIDE [Concomitant]
     Active Substance: HYDROCHLOROTHIAZIDE\LISINOPRIL
     Indication: HYPERTENSION
     Dosage: UNK
     Route: 048
     Dates: start: 200903
  4. KLOR-CON [Concomitant]
     Active Substance: POTASSIUM CHLORIDE
     Indication: MINERAL SUPPLEMENTATION
     Dosage: UNK
     Route: 065
     Dates: start: 201106, end: 201408
  5. VICTOZA [Suspect]
     Active Substance: LIRAGLUTIDE
     Dosage: 0.2 ML, QD
     Route: 065
     Dates: start: 201403, end: 201404
  6. FENOFIBRATE. [Concomitant]
     Active Substance: FENOFIBRATE
     Indication: HYPERLIPIDAEMIA
  7. POTASSIUM CHLORIDE. [Concomitant]
     Active Substance: POTASSIUM CHLORIDE
     Indication: MINERAL SUPPLEMENTATION
     Dosage: UNK
     Route: 065
     Dates: start: 200911, end: 201511
  8. LEVOTHYROXINE SODIUM. [Concomitant]
     Active Substance: LEVOTHYROXINE SODIUM
     Indication: HYPOTHYROIDISM
     Dosage: UNK
     Route: 065
     Dates: start: 200905, end: 201310
  9. FENOFIBRATE. [Concomitant]
     Active Substance: FENOFIBRATE
     Indication: BLOOD CHOLESTEROL INCREASED
     Dosage: UNK
     Route: 065
     Dates: start: 201206, end: 201310
  10. ERGOCALCIFEROL. [Concomitant]
     Active Substance: ERGOCALCIFEROL
     Indication: VITAMIN D DEFICIENCY
     Dosage: UNK
     Route: 065
     Dates: start: 201209, end: 201510

REACTIONS (31)
  - Insomnia [Unknown]
  - Musculoskeletal pain [Unknown]
  - Pancreaticoduodenectomy [Unknown]
  - Post procedural complication [Unknown]
  - Abnormal loss of weight [Unknown]
  - Tonsillectomy [Unknown]
  - Gastroenterostomy [Unknown]
  - Abdominal wall infection [Unknown]
  - Radiotherapy [Unknown]
  - Pancreatic carcinoma metastatic [Not Recovered/Not Resolved]
  - Explorative laparotomy [Unknown]
  - Abdominal wall abscess [Unknown]
  - Pancreatitis [Unknown]
  - Catheter placement [Unknown]
  - Abdominal wall operation [Unknown]
  - Hernia repair [Unknown]
  - Micturition urgency [Unknown]
  - Surgery [Unknown]
  - Cholelithiasis [Unknown]
  - Jaundice [Recovered/Resolved]
  - Neuropathy peripheral [Not Recovered/Not Resolved]
  - Headache [Unknown]
  - Pancreatic carcinoma [Not Recovered/Not Resolved]
  - Post procedural complication [Unknown]
  - Device related infection [Unknown]
  - Pancreaticoduodenectomy [Unknown]
  - Abdominal operation [Unknown]
  - Cholecystitis [Unknown]
  - Urticaria [Unknown]
  - Diabetes mellitus inadequate control [Unknown]
  - Fungal infection [Unknown]

NARRATIVE: CASE EVENT DATE: 20130117
